FAERS Safety Report 5663653-6 (Version None)
Quarter: 2008Q1

REPORT INFORMATION
  Report Type: 
  Country: None (occurrence: None)
  Receive Date: 20080307
  Receipt Date: 20080227
  Transmission Date: 20080703
  Serious: Yes (Hospitalization)
  Sender: FDA-Public Use
  Company Number: AZADE200800035

PATIENT
  Age: 68 Year
  Sex: Female
  Weight: 43 kg

DRUGS (4)
  1. VIDAZA [Suspect]
     Indication: ACUTE MYELOID LEUKAEMIA
     Dosage: 75 MG/M2, DAILY X 7, SUBCUTANEOUS
     Route: 058
     Dates: start: 20071205, end: 20071211
  2. ACYCLOVIR [Concomitant]
  3. ESOMEPRAZOLER (ESOMEPRAZOLE) [Concomitant]
  4. COTRIM FORTE  (BACTRIM /00086101/) [Concomitant]

REACTIONS (8)
  - AGRANULOCYTOSIS [None]
  - ANAEMIA [None]
  - CACHEXIA [None]
  - DIARRHOEA [None]
  - DRUG TOXICITY [None]
  - LEUKOENCEPHALOPATHY [None]
  - PERFORMANCE STATUS DECREASED [None]
  - THROMBOCYTOPENIA [None]
